FAERS Safety Report 4278462-2 (Version None)
Quarter: 2004Q1

REPORT INFORMATION
  Report Type: 
  Country: None (occurrence: None)
  Receive Date: 20040123
  Receipt Date: 20031227
  Transmission Date: 20041129
  Serious: Yes (Hospitalization, Other)
  Sender: FDA-Public Use
  Company Number: WAES 0312USA02553

PATIENT
  Age: 16 Year
  Sex: Male
  Weight: 67 kg

DRUGS (7)
  1. [THERAPY UNSPECIFIED] [Concomitant]
  2. PERCOCET [Concomitant]
  3. INVANZ [Suspect]
     Indication: PERIORBITAL CELLULITIS
     Route: 042
     Dates: start: 20031223, end: 20031227
  4. INVANZ [Suspect]
     Indication: INFECTION
     Route: 042
     Dates: start: 20031223, end: 20031227
  5. PEPCID [Concomitant]
  6. ZOFRAN [Concomitant]
  7. AFRIN [Concomitant]

REACTIONS (3)
  - AGGRESSION [None]
  - AGITATION [None]
  - BRAIN ABSCESS [None]
